FAERS Safety Report 18682604 (Version 1)
Quarter: 2020Q4

REPORT INFORMATION
  Report Type: Report from Study
  Country: US (occurrence: US)
  Receive Date: 20201230
  Receipt Date: 20201230
  Transmission Date: 20210114
  Serious: Yes (Hospitalization, Other)
  Sender: FDA-Public Use
  Company Number: US-GILEAD-2020-0510715

PATIENT
  Age: 22 Year
  Sex: Female

DRUGS (8)
  1. SULFATRIM [SULFADIAZINE;TRIMETHOPRIM] [Concomitant]
     Active Substance: SULFADIAZINE\TRIMETHOPRIM
  2. TOBRAMYCIN. [Concomitant]
     Active Substance: TOBRAMYCIN
  3. MUPIROCIN. [Concomitant]
     Active Substance: MUPIROCIN
  4. DEXA [DEXAMETHASONE] [Concomitant]
  5. AZTREONAM LYSINE [Suspect]
     Active Substance: AZTREONAM LYSINE
     Indication: PRODUCT USED FOR UNKNOWN INDICATION
     Dosage: 75 MG, TID, FOR 28 DAYS, DO NOT ROTATE OFF
     Route: 055
     Dates: start: 20200325
  6. OXYCODONE [Concomitant]
     Active Substance: OXYCODONE
  7. KITABIS PAK [Concomitant]
     Active Substance: TOBRAMYCIN
  8. CIPRO [Concomitant]
     Active Substance: CIPROFLOXACIN HYDROCHLORIDE

REACTIONS (2)
  - Pancreatitis [Not Recovered/Not Resolved]
  - Pneumonia [Not Recovered/Not Resolved]

NARRATIVE: CASE EVENT DATE: 202011
